FAERS Safety Report 10042275 (Version 5)
Quarter: 2014Q4

REPORT INFORMATION
  Report Type: Report from Study
  Country: US (occurrence: US)
  Receive Date: 20140327
  Receipt Date: 20141031
  Transmission Date: 20150528
  Serious: Yes (Hospitalization, Other)
  Sender: FDA-Public Use
  Company Number: US-BAYER-2014-044062

PATIENT
  Age: 65 Year
  Sex: Female
  Weight: 90.3 kg

DRUGS (11)
  1. NEXAVAR [Suspect]
     Active Substance: SORAFENIB
     Indication: THYROID CANCER
     Dosage: 4X200MG
     Route: 048
  2. NEXAVAR [Suspect]
     Active Substance: SORAFENIB
     Indication: THYROID CANCER
     Dosage: 1 TAB BID X 3 DAYS, THEN 2 TABS IN THE MORNING AND 1 TAB IN THE EVE X 3 DAYS, THEN 2 TABS BID
     Route: 048
     Dates: start: 20140310
  3. NEXAVAR [Suspect]
     Active Substance: SORAFENIB
     Indication: THYROID CANCER
     Dosage: 400 MG, BID
     Dates: start: 20140312
  4. NEXAVAR [Suspect]
     Active Substance: SORAFENIB
     Indication: THYROID CANCER
     Dosage: DOSE REGIMEN: 2 X 200
     Route: 048
     Dates: start: 20140314, end: 20140315
  5. NEXAVAR [Suspect]
     Active Substance: SORAFENIB
     Indication: THYROID CANCER
     Dosage: DOSE REGIMEN: 2 X 200
     Route: 048
     Dates: start: 20140319
  6. LABETALOL [Concomitant]
     Active Substance: LABETALOL\LABETALOL HYDROCHLORIDE
  7. NEXAVAR [Suspect]
     Active Substance: SORAFENIB
     Indication: THYROID CANCER
     Dosage: 400 MG, BID
     Route: 048
  8. METFORMIN [Concomitant]
     Active Substance: METFORMIN HYDROCHLORIDE
  9. LANTUS [Concomitant]
     Active Substance: INSULIN GLARGINE
  10. TERAZOSIN [Concomitant]
     Active Substance: TERAZOSIN\TERAZOSIN HYDROCHLORIDE
  11. SIMVASTATIN. [Concomitant]
     Active Substance: SIMVASTATIN

REACTIONS (10)
  - Systolic hypertension [Unknown]
  - Confusional state [None]
  - Rash pruritic [None]
  - Drug administration error [None]
  - Rash generalised [Unknown]
  - Peripheral swelling [Unknown]
  - Back pain [None]
  - Dizziness [Recovered/Resolved]
  - Blood pressure systolic increased [None]
  - Swelling [Unknown]

NARRATIVE: CASE EVENT DATE: 20140314
